FAERS Safety Report 6663827-1 (Version None)
Quarter: 2010Q1

REPORT INFORMATION
  Report Type: 
  Country: None (occurrence: None)
  Receive Date: 20100325
  Receipt Date: 20091202
  Transmission Date: 20100710
  Serious: No
  Sender: FDA-Public Use
  Company Number: 2009-00771

PATIENT
  Age: 61 Year
  Sex: Male
  Weight: 95.2554 kg

DRUGS (4)
  1. COLD REMEDY ZAVORS [Suspect]
     Dosage: QID
     Dates: start: 20091201, end: 20091202
  2. ZOCOR [Concomitant]
  3. COREG [Concomitant]
  4. SYMVASTATIN [Concomitant]

REACTIONS (1)
  - AGEUSIA [None]
